FAERS Safety Report 13256396 (Version 1)
Quarter: 2017Q1

REPORT INFORMATION
  Report Type: Spontaneous
  Country: US (occurrence: US)
  Receive Date: 20170220
  Receipt Date: 20170220
  Transmission Date: 20170428
  Serious: Yes (Hospitalization)
  Sender: FDA-Public Use
  Company Number: None

PATIENT
  Age: 66 Year
  Sex: Male

DRUGS (12)
  1. CYMBALTA [Suspect]
     Active Substance: DULOXETINE HYDROCHLORIDE
     Indication: BACK PAIN
     Route: 048
  2. CARVEDILOL. [Concomitant]
     Active Substance: CARVEDILOL
  3. VITAMIN B12 [Concomitant]
     Active Substance: CYANOCOBALAMIN
  4. DILTIAZEM. [Concomitant]
     Active Substance: DILTIAZEM
  5. AMIODARONE [Concomitant]
     Active Substance: AMIODARONE
  6. HUMALOG [Concomitant]
     Active Substance: INSULIN LISPRO
  7. VENLAFAXINE [Concomitant]
     Active Substance: VENLAFAXINE HYDROCHLORIDE
  8. BUMETANIDE. [Concomitant]
     Active Substance: BUMETANIDE
  9. CHOLECALCIFEROL [Concomitant]
     Active Substance: CHOLECALCIFEROL
  10. WARFARIN [Concomitant]
     Active Substance: WARFARIN
  11. LANTUS [Concomitant]
     Active Substance: INSULIN GLARGINE
  12. SEVALAMER [Concomitant]

REACTIONS (3)
  - Asthenia [None]
  - Mental status changes [None]
  - Fall [None]

NARRATIVE: CASE EVENT DATE: 20161102
